FAERS Safety Report 8060502-6 (Version None)
Quarter: 2012Q1

REPORT INFORMATION
  Report Type: 
  Country: None (occurrence: None)
  Receive Date: 20120119
  Receipt Date: 20120119
  Transmission Date: 20120608
  Serious: No
  Sender: FDA-Public Use
  Company Number: None

PATIENT
  Age: 73 Year
  Sex: Female
  Weight: 86.637 kg

DRUGS (1)
  1. MORPHINE SULFATE [Suspect]
     Indication: PAIN
     Dosage: INTRAVENOUS;2.0
     Route: 042
     Dates: start: 20120109, end: 20120109

REACTIONS (2)
  - INJECTION SITE ERYTHEMA [None]
  - INJECTION SITE PAIN [None]
